FAERS Safety Report 8477407-9 (Version None)
Quarter: 2012Q2

REPORT INFORMATION
  Report Type: 
  Country: None (occurrence: None)
  Receive Date: 20120629
  Receipt Date: 20120621
  Transmission Date: 20120825
  Serious: Yes (Hospitalization)
  Sender: FDA-Public Use
  Company Number: US-BAYER-2011-107353

PATIENT
  Age: 32 Year
  Sex: Female
  Weight: 63 kg

DRUGS (29)
  1. EFFEXOR XR [Concomitant]
     Dosage: 150 MG, UNK
  2. METHOTREXATE [Concomitant]
     Indication: ARTHRITIS
  3. GABITRIL [Concomitant]
     Dosage: 4 MG, UNK
  4. FROVA [Concomitant]
  5. NUBAIN [Concomitant]
     Dosage: 10 MG, UNK
     Route: 030
     Dates: start: 20060812
  6. REQUIP [Concomitant]
     Dosage: 3 MG, UNK
  7. LIPITOR [Concomitant]
     Dosage: 20 MG, UNK
  8. HUMIRA [Concomitant]
  9. ZANAFLEX [Concomitant]
  10. KLONOPIN [Concomitant]
     Dosage: 1 MG, UNK
     Route: 048
     Dates: start: 20060802
  11. PRILOSEC [Concomitant]
     Indication: GASTROOESOPHAGEAL REFLUX DISEASE
     Dosage: 20 MG, UNK
  12. FENTANYL CITRATE [Concomitant]
  13. ZANAFLEX [Concomitant]
  14. DEPO-MEDROL [Concomitant]
     Dosage: 80 MG, UNK
     Route: 008
     Dates: start: 20060727
  15. MARCAINE [Concomitant]
     Dosage: 3 ML, UNK
     Route: 008
     Dates: start: 20060727
  16. IMITREX [Concomitant]
     Dosage: 100 MG, UNK
     Route: 048
     Dates: start: 20060802
  17. YASMIN [Suspect]
     Indication: CONTRACEPTION
     Dosage: UNK
     Dates: start: 20041129, end: 20060716
  18. YASMIN [Suspect]
     Indication: POLYCYSTIC OVARIES
  19. TOPAMAX [Concomitant]
     Dosage: 25 MG, UNK
     Route: 048
     Dates: start: 20060802
  20. TRICOR [Concomitant]
     Dosage: 145 MG, UNK
     Route: 048
     Dates: start: 20060802
  21. TORADOL [Concomitant]
     Dosage: 60 MG, UNK
     Route: 030
     Dates: start: 20060812
  22. YASMIN [Suspect]
     Indication: MENSTRUATION IRREGULAR
  23. NEURONTIN [Concomitant]
     Dosage: 600 MG, UNK
  24. NERVOUS SYSTEM [Concomitant]
  25. ZONEGRAN [Concomitant]
     Dosage: 100 MG, UNK
  26. ALLEGRA [Concomitant]
  27. SYNTHROID [Concomitant]
     Dosage: 0.1 MG, UNK
  28. CELEBREX [Concomitant]
     Indication: ARTHRITIS
     Dosage: 200 MG, UNK
  29. DIFFERIN [Concomitant]
     Dosage: 0.1 %

REACTIONS (9)
  - OROPHARYNGEAL PAIN [None]
  - PNEUMONIA [None]
  - PAIN [None]
  - PYREXIA [None]
  - DRY THROAT [None]
  - PULMONARY ARTERY THROMBOSIS [None]
  - SYNCOPE [None]
  - PHARYNGITIS STREPTOCOCCAL [None]
  - DYSPHAGIA [None]
